FAERS Safety Report 24862234 (Version 1)
Quarter: 2025Q1

REPORT INFORMATION
  Report Type: Spontaneous
  Country: US (occurrence: US)
  Receive Date: 20250120
  Receipt Date: 20250120
  Transmission Date: 20250409
  Serious: Yes (Disabling)
  Sender: REGENERON
  Company Number: US-REGENERON PHARMACEUTICALS, INC.-2025-015904

PATIENT
  Sex: Male

DRUGS (4)
  1. EYLEA HD [Suspect]
     Active Substance: AFLIBERCEPT
     Indication: Retinal vein occlusion
     Dates: start: 20241108, end: 20241108
  2. LISINOPRIL [Concomitant]
     Active Substance: LISINOPRIL
     Indication: Blood pressure measurement
  3. ASPIRIN [Concomitant]
     Active Substance: ASPIRIN
     Indication: Product used for unknown indication
     Dosage: DAILY
  4. VICTOZA [Concomitant]
     Active Substance: LIRAGLUTIDE
     Indication: Diabetes mellitus

REACTIONS (5)
  - Physical disability [Unknown]
  - Visual impairment [Unknown]
  - Off label use [Unknown]
  - Drug effective for unapproved indication [Unknown]
  - Product dose omission issue [Unknown]

NARRATIVE: CASE EVENT DATE: 20240101
